FAERS Safety Report 13879619 (Version 1)
Quarter: 2017Q3

REPORT INFORMATION
  Report Type: Spontaneous
  Country: US (occurrence: US)
  Receive Date: 20170818
  Receipt Date: 20170818
  Transmission Date: 20171127
  Serious: Yes (Hospitalization)
  Sender: FDA-Public Use
  Company Number: US-ROCHE-1979442

PATIENT
  Age: 52 Year
  Sex: Female
  Weight: 80.36 kg

DRUGS (1)
  1. HERCEPTIN [Suspect]
     Active Substance: TRASTUZUMAB
     Indication: HER-2 POSITIVE BREAST CANCER
     Dosage: NO
     Route: 065
     Dates: start: 2007, end: 2008

REACTIONS (3)
  - Breast atrophy [Not Recovered/Not Resolved]
  - Precancerous cells present [Unknown]
  - Haematotoxicity [Recovered/Resolved]

NARRATIVE: CASE EVENT DATE: 2007
